FAERS Safety Report 8056563-0 (Version None)
Quarter: 2012Q1

REPORT INFORMATION
  Report Type: 
  Country: None (occurrence: None)
  Receive Date: 20120119
  Receipt Date: 20120111
  Transmission Date: 20120608
  Serious: Yes (Death)
  Sender: FDA-Public Use
  Company Number: US-CELGENEUS-163-21880-11122138

PATIENT
  Sex: Female
  Weight: 58.112 kg

DRUGS (13)
  1. AMOXICILLIN [Concomitant]
     Dosage: 500 MILLIGRAM
     Route: 048
  2. FOLIC ACID [Concomitant]
     Dosage: 1 MILLIGRAM
     Route: 048
  3. DEXAMETHASONE TAB [Concomitant]
     Dosage: 4 MILLIGRAM
     Route: 048
  4. DUONEB [Concomitant]
     Dosage: .5 MILLIGRAM
     Route: 048
  5. XANAX [Concomitant]
     Indication: ANXIETY
     Dosage: .5 MILLIGRAM
     Route: 048
  6. DURAGESIC-100 [Concomitant]
     Dosage: 100 MICROGRAM
     Route: 062
  7. REVLIMID [Suspect]
     Indication: MULTIPLE MYELOMA
     Dosage: 25 MILLIGRAM
     Route: 048
     Dates: start: 20111201, end: 20111206
  8. OXYCODONE HCL [Concomitant]
     Indication: PAIN
     Dosage: 5 MILLIGRAM
     Route: 062
  9. ADVAIR DISKUS 100/50 [Concomitant]
     Dosage: 500/50MCG
     Route: 048
  10. NITROGLYCERIN [Concomitant]
     Dosage: .4 MILLIGRAM
     Route: 060
  11. LEVOTHYROXINE SODIUM [Concomitant]
     Dosage: 137 MICROGRAM
     Route: 048
  12. OXYCONTIN [Concomitant]
     Dosage: 40 MILLIGRAM
     Route: 048
  13. ATENOLOL [Concomitant]
     Dosage: 50 MILLIGRAM
     Route: 048

REACTIONS (3)
  - HYPERCALCAEMIA OF MALIGNANCY [None]
  - MULTIPLE MYELOMA [None]
  - SEPSIS [None]
